FAERS Safety Report 4652973-X (Version None)
Quarter: 2005Q2

REPORT INFORMATION
  Report Type: 
  Country: None (occurrence: None)
  Receive Date: 20050503
  Receipt Date: 20050420
  Transmission Date: 20051028
  Serious: Yes (Hospitalization)
  Sender: FDA-Public Use
  Company Number: FABR-11075

PATIENT
  Age: 43 Year
  Sex: Male

DRUGS (4)
  1. FABRAZYME [Suspect]
     Indication: FABRY'S DISEASE
  2. LEXAPRO [Concomitant]
  3. NEURONTIN [Concomitant]
  4. ZYPREXA [Concomitant]

REACTIONS (1)
  - RENAL TRANSPLANT [None]
